FAERS Safety Report 25409545 (Version 1)
Quarter: 2025Q2

REPORT INFORMATION
  Report Type: Spontaneous
  Country: US (occurrence: US)
  Receive Date: 20250607
  Receipt Date: 20250607
  Transmission Date: 20250717
  Serious: No
  Sender: BRAEBURN PHARMACEUTICALS
  Company Number: US-BRAEBURN PHARMACEUTICALS-US-BRA-25-000345

PATIENT

DRUGS (4)
  1. BRIXADI [Suspect]
     Active Substance: BUPRENORPHINE
     Indication: Drug dependence
     Dosage: 8 MILLIGRAM, QW
     Route: 058
     Dates: start: 20241031
  2. PROPRANOLOL [Concomitant]
     Active Substance: PROPRANOLOL HYDROCHLORIDE
     Indication: Product used for unknown indication
     Route: 065
  3. SUBLOCADE [Concomitant]
     Active Substance: BUPRENORPHINE
     Indication: Product used for unknown indication
     Route: 065
  4. SUBLOCADE [Concomitant]
     Active Substance: BUPRENORPHINE
     Route: 065

REACTIONS (5)
  - Heart rate irregular [Unknown]
  - Chest discomfort [Unknown]
  - Feeling jittery [Unknown]
  - Panic attack [Unknown]
  - Anxiety [Unknown]

NARRATIVE: CASE EVENT DATE: 20250401
